FAERS Safety Report 4571658-1 (Version None)
Quarter: 2005Q1

REPORT INFORMATION
  Report Type: 
  Country: None (occurrence: None)
  Receive Date: 20050207
  Receipt Date: 20040917
  Transmission Date: 20050727
  Serious: Yes (Death, Other)
  Sender: FDA-Public Use
  Company Number: US-AMGEN-KDL092139

PATIENT
  Sex: Male
  Weight: 94.5 kg

DRUGS (7)
  1. PROCRIT [Suspect]
     Indication: ANAEMIA OF MALIGNANT DISEASE
     Route: 058
     Dates: start: 20040206, end: 20040528
  2. BLOOD CELLS, PACKED HUMAN [Concomitant]
     Dates: start: 20040420
  3. NEULASTA [Concomitant]
     Indication: CHEMOTHERAPY
     Dates: start: 20040209
  4. CYTOXAN [Concomitant]
     Dates: start: 20040201, end: 20040927
  5. DOXORUBICIN HCL [Concomitant]
     Dates: start: 20040201, end: 20040927
  6. VINCRISTINE SULFATE [Concomitant]
     Dates: start: 20040201, end: 20040927
  7. PREDNISONE [Concomitant]
     Dates: start: 20040201, end: 20040927

REACTIONS (12)
  - ABDOMINAL PAIN [None]
  - ASTHENIA [None]
  - DECREASED APPETITE [None]
  - DIZZINESS [None]
  - DYSPNOEA [None]
  - GENERAL PHYSICAL HEALTH DETERIORATION [None]
  - HAEMOGLOBIN DECREASED [None]
  - MALIGNANT NEOPLASM PROGRESSION [None]
  - NON-HODGKIN'S LYMPHOMA [None]
  - PLATELET COUNT DECREASED [None]
  - REFUSAL OF TREATMENT BY PATIENT [None]
  - RENAL FAILURE ACUTE [None]
